FAERS Safety Report 9220876 (Version 1)
Quarter: 2013Q2

REPORT INFORMATION
  Report Type: Spontaneous
  Country: US (occurrence: US)
  Receive Date: 20130409
  Receipt Date: 20130409
  Transmission Date: 20140414
  Serious: Yes (Other)
  Sender: FDA-Public Use
  Company Number: US-GLAXOSMITHKLINE-A1018273A

PATIENT
  Age: 63 Year
  Sex: Female

DRUGS (2)
  1. VENTOLIN [Suspect]
     Indication: ASTHMA
     Dosage: 90MCG AS REQUIRED
     Route: 055
  2. NO CONCURRENT MEDICATION [Concomitant]

REACTIONS (2)
  - Choking [Recovered/Resolved]
  - Dysgeusia [Recovered/Resolved]
